FAERS Safety Report 24600544 (Version 1)
Quarter: 2024Q4

REPORT INFORMATION
  Report Type: Spontaneous
  Country: US (occurrence: US)
  Receive Date: 20241110
  Receipt Date: 20241110
  Transmission Date: 20250115
  Serious: No
  Sender: AMGEN
  Company Number: US-AMGEN-USASP2024220266

PATIENT

DRUGS (1)
  1. KYPROLIS [Suspect]
     Active Substance: CARFILZOMIB
     Indication: Product used for unknown indication
     Dosage: 60 MILLIGRAM
     Route: 065

REACTIONS (1)
  - Rash pruritic [Unknown]

NARRATIVE: CASE EVENT DATE: 20241028
